FAERS Safety Report 8153378-X (Version None)
Quarter: 2012Q1

REPORT INFORMATION
  Report Type: 
  Country: None (occurrence: None)
  Receive Date: 20120221
  Receipt Date: 20110701
  Transmission Date: 20120608
  Serious: Yes (Other)
  Sender: FDA-Public Use
  Company Number: FR-ROCHE-785626

PATIENT
  Age: 55 Year
  Sex: Female

DRUGS (3)
  1. BEVACIZUMAB [Suspect]
     Indication: LUNG ADENOCARCINOMA
     Route: 065
  2. PACLITAXEL [Concomitant]
     Indication: METASTATIC BRONCHIAL CARCINOMA
  3. CARBOPLATIN [Concomitant]
     Indication: METASTATIC BRONCHIAL CARCINOMA

REACTIONS (1)
  - PNEUMOTHORAX [None]
